FAERS Safety Report 14692730 (Version 1)
Quarter: 2018Q1

REPORT INFORMATION
  Report Type: Spontaneous
  Country: GB (occurrence: GB)
  Receive Date: 20180329
  Receipt Date: 20180329
  Transmission Date: 20180509
  Serious: Yes (Other)
  Sender: FDA-Public Use
  Company Number: GB-AUROBINDO-AUR-APL-2018-011057

PATIENT
  Sex: Female
  Weight: 2.1 kg

DRUGS (18)
  1. COLECALCIFEROL [Suspect]
     Active Substance: CHOLECALCIFEROL
     Dosage: 800 IU, QD
     Route: 064
  2. COLECALCIFEROL [Suspect]
     Active Substance: CHOLECALCIFEROL
     Dosage: 800 IU, QD
     Route: 064
  3. CALCIUM PLUS                       /06660601/ [Suspect]
     Active Substance: CALCIUM CARBONATE\ MAGNESIUM OXIDE\SODIUM BORATE\VITAMINS
     Indication: PRODUCT USED FOR UNKNOWN INDICATION
     Dosage: ()
     Route: 064
  4. DEXTROSE. [Suspect]
     Active Substance: DEXTROSE
     Dosage: UNK ()
     Route: 064
  5. COLECALCIFEROL [Suspect]
     Active Substance: CHOLECALCIFEROL
     Indication: PRODUCT USED FOR UNKNOWN INDICATION
     Dosage: ()
     Route: 064
  6. HUMULIN L [Suspect]
     Active Substance: INSULIN HUMAN
     Dosage: UNK ()
     Route: 064
  7. CALCIUM PLUS                       /06660601/ [Suspect]
     Active Substance: CALCIUM CARBONATE\ MAGNESIUM OXIDE\SODIUM BORATE\VITAMINS
     Dosage: ()
     Route: 064
  8. HUMALOG [Suspect]
     Active Substance: INSULIN LISPRO
     Indication: GESTATIONAL DIABETES
     Dosage: ()
     Route: 064
  9. HUMALOG [Suspect]
     Active Substance: INSULIN LISPRO
     Dosage: UNK ()
     Route: 064
  10. DEXTROSE. [Suspect]
     Active Substance: DEXTROSE
     Indication: HYPOGLYCAEMIA
     Dosage: ()
     Route: 064
  11. DEXTROSE. [Suspect]
     Active Substance: DEXTROSE
     Dosage: UNK ()
     Route: 064
  12. HUMULIN L [Suspect]
     Active Substance: INSULIN HUMAN
     Indication: GESTATIONAL DIABETES
     Dosage: ()
     Route: 064
  13. HUMULIN L [Suspect]
     Active Substance: INSULIN HUMAN
     Dosage: UNK ()
     Route: 064
  14. METFORMIN [Suspect]
     Active Substance: METFORMIN HYDROCHLORIDE
     Indication: GESTATIONAL DIABETES
     Dosage: ()
     Route: 064
  15. URSODEOXYCHOLIC ACID [Suspect]
     Active Substance: URSODIOL
     Indication: PRODUCT USED FOR UNKNOWN INDICATION
     Dosage: ()
     Route: 064
  16. CALCIUM PLUS [CALCIUM] [Concomitant]
     Dosage: UNK ()
  17. HUMALOG [Suspect]
     Active Substance: INSULIN LISPRO
     Dosage: UNK ()
     Route: 064
  18. VITAMINS NOS [Concomitant]
     Active Substance: VITAMINS
     Dosage: UNK ()
     Route: 064

REACTIONS (5)
  - Premature baby [Unknown]
  - Small for dates baby [Unknown]
  - Live birth [Unknown]
  - Foetal exposure during pregnancy [Unknown]
  - Low birth weight baby [Unknown]
